FAERS Safety Report 4607966-5 (Version None)
Quarter: 2005Q2

REPORT INFORMATION
  Report Type: 
  Country: None (occurrence: None)
  Receive Date: 20050303
  Receipt Date: 20041130
  Transmission Date: 20051028
  Serious: No
  Sender: FDA-Public Use
  Company Number: 210804

PATIENT
  Age: 54 Year
  Sex: Female

DRUGS (1)
  1. XOLAIR (OMALIZUMAB) PWDR + SOLN, 150 MG [Suspect]
     Indication: ASTHMA
     Dosage: 150 MG,
     Dates: start: 20041130

REACTIONS (1)
  - PRURITUS GENERALISED [None]
